FAERS Safety Report 15959107 (Version 2)
Quarter: 2019Q1

REPORT INFORMATION
  Report Type: Spontaneous
  Country: US (occurrence: US)
  Receive Date: 20190214
  Receipt Date: 20190305
  Transmission Date: 20190417
  Serious: No
  Sender: FDA-Public Use
  Company Number: US-AMGEN-USASP2019020381

PATIENT
  Age: 66 Year
  Sex: Male
  Weight: 108.8 kg

DRUGS (1)
  1. REPATHA [Suspect]
     Active Substance: EVOLOCUMAB
     Indication: BLOOD CHOLESTEROL INCREASED
     Dosage: 140 MG, Q2WK
     Route: 065
     Dates: start: 2018

REACTIONS (6)
  - Wrong technique in product usage process [Unknown]
  - Device issue [Unknown]
  - Blood cholesterol increased [Unknown]
  - Accidental exposure to product [Unknown]
  - Low density lipoprotein increased [Unknown]
  - High density lipoprotein increased [Unknown]

NARRATIVE: CASE EVENT DATE: 20190122
